FAERS Safety Report 23288260 (Version 2)
Quarter: 2024Q1

REPORT INFORMATION
  Report Type: Report from Study
  Country: CA (occurrence: CA)
  Receive Date: 20231212
  Receipt Date: 20240329
  Transmission Date: 20240409
  Serious: Yes (Other)
  Sender: FDA-Public Use
  Company Number: CA-OTSUKA-2023_028190

PATIENT
  Sex: Male

DRUGS (1)
  1. CEDAZURIDINE\DECITABINE [Suspect]
     Active Substance: CEDAZURIDINE\DECITABINE
     Indication: Chronic myelomonocytic leukaemia
     Dosage: 1 DF (35 MG DECITABINE AND 100 MG CEDAZURIDINE) ONCE DAILY ON DAYS 1-5 EVERY 28 DAYS
     Route: 048
     Dates: start: 20230924

REACTIONS (7)
  - Loss of consciousness [Unknown]
  - Nephrolithiasis [Unknown]
  - Platelet count decreased [Recovering/Resolving]
  - Full blood count abnormal [Unknown]
  - Dizziness [Unknown]
  - Haematuria [Unknown]
  - Anaemia [Recovered/Resolved]
